FAERS Safety Report 21392393 (Version 1)
Quarter: 2022Q3

REPORT INFORMATION
  Report Type: Spontaneous
  Country: SI (occurrence: SI)
  Receive Date: 20220929
  Receipt Date: 20220929
  Transmission Date: 20221027
  Serious: Yes (Other)
  Sender: FDA-Public Use
  Company Number: SI-002147023-NVSC2022SI208965

PATIENT
  Sex: Male

DRUGS (3)
  1. METHYLPREDNISOLONE [Suspect]
     Active Substance: METHYLPREDNISOLONE
     Route: 065
  2. CYCLOSPORINE [Suspect]
     Active Substance: CYCLOSPORINE
     Indication: Chronic graft versus host disease
     Route: 065
  3. RUXOLITINIB [Concomitant]
     Active Substance: RUXOLITINIB
     Route: 065
     Dates: end: 202205

REACTIONS (7)
  - Chronic graft versus host disease oral [Unknown]
  - Chronic graft versus host disease in skin [Unknown]
  - Chronic graft versus host disease in eye [Unknown]
  - Chronic graft versus host disease in liver [Unknown]
  - Chronic graft versus host disease [Unknown]
  - Engraftment syndrome [Unknown]
  - Therapeutic product effect incomplete [Unknown]
